FAERS Safety Report 10482695 (Version 4)
Quarter: 2014Q4

REPORT INFORMATION
  Report Type: Report from Study
  Country: DE (occurrence: DE)
  Receive Date: 20140929
  Receipt Date: 20141125
  Transmission Date: 20150528
  Serious: Yes (Hospitalization)
  Sender: FDA-Public Use
  Company Number: DE-MERCK-1402DEU010376

PATIENT
  Age: 54 Year
  Sex: Male
  Weight: 98 kg

DRUGS (15)
  1. TAVOR [Concomitant]
     Active Substance: LORAZEPAM
     Indication: BREAST PAIN
     Dosage: TOTAL DAILY DOSE 1 MG, PRN (AS NEEDED)
     Route: 048
     Dates: start: 20131121
  2. CORTISONE [Concomitant]
     Active Substance: CORTISONE\HYDROCORTISONE
     Indication: RASH MACULO-PAPULAR
     Dosage: STRENGTH: 1 APPLICATION, TOTAL DAILY DOSE: 2 APPLICATION, BID
     Route: 061
     Dates: start: 20131213
  3. PEMBROLIZUMAB. [Suspect]
     Active Substance: PEMBROLIZUMAB
     Indication: MALIGNANT MELANOMA
     Dosage: UNK, Q3W
     Route: 042
     Dates: start: 20131031, end: 20140124
  4. PEMBROLIZUMAB. [Suspect]
     Active Substance: PEMBROLIZUMAB
     Dosage: UNK, Q3W
     Route: 042
     Dates: start: 20140213, end: 20140213
  5. FORTECORTIN [Concomitant]
     Active Substance: DEXAMETHASONE
     Indication: PROPHYLAXIS
     Dosage: 4 MG, ONCE A WEEK (QW)
     Route: 042
     Dates: start: 20130709
  6. RANITIC [Concomitant]
     Active Substance: RANITIDINE HYDROCHLORIDE
     Indication: PROPHYLAXIS
     Dosage: 5 ML, ONCE A WEEK (QW)
     Route: 042
     Dates: start: 20130709
  7. VOLON [Concomitant]
     Indication: APHTHOUS STOMATITIS
     Dosage: STRENGTH: 1 APPLICATION, TOTAL DAILY DOSE: 3 APPLICATION, TID
     Route: 061
     Dates: start: 20130904
  8. GRANISETRON [Concomitant]
     Active Substance: GRANISETRON
     Indication: PROPHYLAXIS OF NAUSEA AND VOMITING
     Dosage: 1 MG, ONCE A WEEK (QW)
     Route: 042
     Dates: start: 20130709
  9. VOMEX A [Concomitant]
     Active Substance: DIMENHYDRINATE
     Indication: NAUSEA
     Dosage: TOTAL DAILY DOSE 50 MG, PRN
     Route: 048
     Dates: start: 20130724
  10. LINOLA [Concomitant]
     Indication: ARTHROPOD BITE
     Dosage: STRENGTH: 1APPLICATION, TOTAL DAILY DOSE: 2 APPLICATION, BID
     Route: 061
     Dates: start: 20130904
  11. CATS CLAW [Concomitant]
     Indication: ROUTINE HEALTH MAINTENANCE
     Dosage: 1 TABLET, BID
     Route: 048
     Dates: start: 20130404
  12. FENISTIL [Concomitant]
     Active Substance: DIMETHINDENE
     Indication: PROPHYLAXIS
     Dosage: 4 MG, ONCE A WEEK (QW)
     Route: 042
     Dates: start: 20130709
  13. BASODEXAN [Concomitant]
     Indication: RASH
     Dosage: STRENGTH: 1APPLICATION, TOTAL DAILY DOSE: 2 APPLICATION, BID
     Route: 061
     Dates: start: 20130813
  14. MUCOANGIN [Concomitant]
     Indication: COUGH
     Dosage: STRENGTH: 1 TABLET; TOTAL DAILY DOSE: 1 TABLET, PRN (AS NEEDED)
     Route: 048
     Dates: start: 20131022
  15. ASHWAGANDHA (+) CATS CLAW (+) PAU D^ARCO (+) RHODIOLA (+) STEMMACANTHA [Concomitant]
     Indication: IMMUNISATION
     Dosage: 1 TABLET, BID
     Route: 048
     Dates: start: 20130404

REACTIONS (1)
  - Pancreatitis [Recovering/Resolving]

NARRATIVE: CASE EVENT DATE: 20140215
